FAERS Safety Report 5077124-1 (Version None)
Quarter: 2006Q3

REPORT INFORMATION
  Report Type: 
  Country: None (occurrence: None)
  Receive Date: 20060810
  Receipt Date: 20051215
  Transmission Date: 20061208
  Serious: No
  Sender: FDA-Public Use
  Company Number: US-GLAXOSMITHKLINE-A0585981A

PATIENT
  Age: 62 Year
  Sex: Female

DRUGS (10)
  1. PAROXETINE HCL [Suspect]
     Indication: DEPRESSION
     Dosage: 60MG PER DAY
     Route: 048
     Dates: start: 20030101
  2. SYNTHROID [Concomitant]
  3. PRILOSEC [Concomitant]
  4. ARIMIDEX [Concomitant]
  5. TRIAMTERENE AND HYDROCHLOROTHIAZIDE [Concomitant]
  6. CARBIDOPA AND LEVODOPA [Concomitant]
  7. TRAZODONE HCL [Concomitant]
  8. BUSPAR [Concomitant]
  9. LIPITOR [Concomitant]
  10. VITAMIN [Concomitant]

REACTIONS (3)
  - DEPRESSION [None]
  - DRUG INEFFECTIVE [None]
  - MENTAL IMPAIRMENT [None]
